FAERS Safety Report 9945550 (Version 1)
Quarter: 2014Q1

REPORT INFORMATION
  Report Type: Report from Study
  Country: US (occurrence: US)
  Receive Date: 20140303
  Receipt Date: 20140303
  Transmission Date: 20141002
  Serious: No
  Sender: FDA-Public Use
  Company Number: US-ABBVIE-13P-163-1049520-00

PATIENT
  Age: 62 Year
  Sex: Female

DRUGS (13)
  1. HUMIRA [Suspect]
     Indication: RHEUMATOID ARTHRITIS
     Dates: start: 2011
  2. METHOTREXATE [Concomitant]
     Indication: RHEUMATOID ARTHRITIS
  3. GABAPENTIN [Concomitant]
     Indication: NEUROPATHY PERIPHERAL
  4. IBUPROFEN [Concomitant]
     Indication: PAIN
  5. FOLIC ACID [Concomitant]
     Indication: NUTRITIONAL SUPPLEMENTATION
  6. VITAMIN D [Concomitant]
     Indication: NUTRITIONAL SUPPLEMENTATION
  7. LORTAB [Concomitant]
     Indication: PAIN
  8. ZANAFLEX [Concomitant]
     Indication: MYALGIA
  9. FIORICET [Concomitant]
     Indication: HEADACHE
  10. ULTRAM [Concomitant]
     Indication: PAIN
  11. LIDODERM PATCH [Concomitant]
     Indication: PAIN
  12. VITAMIN B 12 [Concomitant]
     Indication: NUTRITIONAL SUPPLEMENTATION
  13. HYDROCHLOROTHIAZIDE [Concomitant]
     Indication: HYPERTENSION

REACTIONS (1)
  - Abdominal discomfort [Recovered/Resolved]
